FAERS Safety Report 17194106 (Version 2)
Quarter: 2020Q2

REPORT INFORMATION
  Report Type: Report from Study
  Country: US (occurrence: US)
  Receive Date: 20191224
  Receipt Date: 20200501
  Transmission Date: 20200713
  Serious: Yes (Other)
  Sender: FDA-Public Use
  Company Number: US-SUN PHARMACEUTICAL INDUSTRIES LTD-2019R1-231105

PATIENT
  Sex: Male

DRUGS (1)
  1. SONIDEGIB [Suspect]
     Active Substance: SONIDEGIB
     Indication: BASAL CELL CARCINOMA
     Dosage: UNK
     Route: 065

REACTIONS (6)
  - Muscle twitching [Unknown]
  - Muscle spasms [Unknown]
  - Quality of life decreased [Unknown]
  - Blindness [Not Recovered/Not Resolved]
  - Treatment noncompliance [Unknown]
  - Fall [Unknown]
